FAERS Safety Report 11125813 (Version 1)
Quarter: 2015Q2

REPORT INFORMATION
  Report Type: Spontaneous
  Country: PL (occurrence: PL)
  Receive Date: 20150520
  Receipt Date: 20150520
  Transmission Date: 20150821
  Serious: Yes (Life-Threatening)
  Sender: FDA-Public Use
  Company Number: PL-TEVA-563448ISR

PATIENT
  Age: 68 Year
  Sex: Female

DRUGS (2)
  1. ETOPOSID EBEWE [Suspect]
     Active Substance: ETOPOSIDE
     Indication: LUNG NEOPLASM MALIGNANT
     Dosage: 163.97  DAILY;
     Route: 042
     Dates: start: 20150428, end: 20150430
  2. CISPLATIN TEVA [Suspect]
     Active Substance: CISPLATIN
     Indication: LUNG NEOPLASM MALIGNANT
     Dosage: 49.19 MILLIGRAM DAILY;
     Route: 042
     Dates: start: 20150428, end: 20150430

REACTIONS (3)
  - Pneumonia [Recovered/Resolved]
  - Neutropenia [Recovered/Resolved]
  - C-reactive protein increased [Not Recovered/Not Resolved]

NARRATIVE: CASE EVENT DATE: 20150506
